FAERS Safety Report 16464561 (Version 1)
Quarter: 2019Q3

REPORT INFORMATION
  Report Type: Spontaneous
  Country: US (occurrence: US)
  Receive Date: 20190620
  Receipt Date: 20190620
  Transmission Date: 20191004
  Serious: No
  Sender: FDA-Public Use
  Company Number: None

PATIENT
  Age: 70 Year
  Sex: Male
  Weight: 83.25 kg

DRUGS (3)
  1. FLAX SEED [Concomitant]
     Active Substance: FLAX SEED
  2. ATORVASTATIN 20MG [Suspect]
     Active Substance: ATORVASTATIN
     Indication: BLOOD CHOLESTEROL INCREASED
     Dosage: ?          QUANTITY:1 TABLET(S);?
     Route: 048
  3. EDARBE [Concomitant]

REACTIONS (2)
  - Neuropathy peripheral [None]
  - Product substitution issue [None]

NARRATIVE: CASE EVENT DATE: 20190617
